FAERS Safety Report 14023104 (Version 2)
Quarter: 2017Q4

REPORT INFORMATION
  Report Type: Spontaneous
  Country: US (occurrence: US)
  Receive Date: 20170929
  Receipt Date: 20171220
  Transmission Date: 20180321
  Serious: Yes (Hospitalization, Disabling, Other)
  Sender: FDA-Public Use
  Company Number: US-009507513-1709USA013445

PATIENT
  Sex: Female
  Weight: 82.54 kg

DRUGS (7)
  1. CHERATUSSIN AC [Concomitant]
     Active Substance: CODEINE PHOSPHATE\GUAIFENESIN
     Indication: UPPER RESPIRATORY TRACT INFECTION
     Dosage: 10-100 MG/5 ML, 1-2 TSP Q4 HRS, PRN
     Route: 048
     Dates: start: 201510, end: 20151026
  2. FLUCONAZOLE. [Concomitant]
     Active Substance: FLUCONAZOLE
     Indication: UPPER RESPIRATORY TRACT INFECTION
     Dosage: 150 MG, TAKE 1 TABLET AS DIRECGTED
     Route: 048
     Dates: start: 201510, end: 20151026
  3. CLINDAMYCIN HYDROCHLORIDE. [Concomitant]
     Active Substance: CLINDAMYCIN HYDROCHLORIDE
     Indication: ATROPHIC VULVOVAGINITIS
     Dosage: 300 MG, BID
     Route: 048
     Dates: start: 20151006
  4. PSEUDOEPHEDRINE HYDROCHLORIDE. [Concomitant]
     Active Substance: PSEUDOEPHEDRINE HYDROCHLORIDE
     Indication: UPPER RESPIRATORY TRACT INFECTION
     Dosage: 60 MG, AS DIRECTED
     Route: 048
     Dates: start: 201510
  5. METHYLPREDNISOLONE. [Concomitant]
     Active Substance: METHYLPREDNISOLONE
     Indication: UPPER RESPIRATORY TRACT INFECTION
     Dosage: 4 MG, TAPER OVER 6 DAYS AS DIRECTED
     Route: 048
     Dates: start: 201510, end: 20151026
  6. NUVARING [Suspect]
     Active Substance: ETHINYL ESTRADIOL\ETONOGESTREL
     Indication: CONTRACEPTION
     Dosage: 0.12-0.015 MG/24 HRS, UNK
     Route: 067
     Dates: start: 20151006, end: 20151024
  7. NASACORT [Concomitant]
     Active Substance: TRIAMCINOLONE ACETONIDE
     Indication: UPPER RESPIRATORY TRACT INFECTION
     Dosage: 1 SPRAY INTO EACH NOSTRIL, QD
     Route: 045
     Dates: start: 201510

REACTIONS (5)
  - Peripheral swelling [Unknown]
  - Pulmonary embolism [Recovering/Resolving]
  - Tension headache [Unknown]
  - Nephrolithiasis [Unknown]
  - Disturbance in attention [Unknown]

NARRATIVE: CASE EVENT DATE: 2015
